FAERS Safety Report 10171000 (Version 1)
Quarter: 2014Q2

REPORT INFORMATION
  Report Type: Spontaneous
  Country: US (occurrence: None)
  Receive Date: 20140512
  Receipt Date: 20140512
  Transmission Date: 20141212
  Serious: Yes (Hospitalization, Other)
  Sender: FDA-Public Use
  Company Number: 2009S1007623

PATIENT
  Age: 67 Year
  Sex: Female

DRUGS (7)
  1. FLEET PHOSPHO-SODA ORAL SALINE LAXATIVE, GINGER-LEMON FLAVOR (ORAL SOLUTION) [Suspect]
     Indication: COLONOSCOPY
     Dates: start: 20080721
  2. BISACODYL (BISACODYL) [Suspect]
     Indication: COLONOSCOPY
  3. SYNTHROID (LEVOTHYROXINE SODIUM) [Concomitant]
  4. LEXAPRO (ESCITALOPRAM OXALATE) [Concomitant]
  5. PREMARIN (ESTROGENS CONJUGATED) [Concomitant]
  6. DIOVAN HCT (HYDROCHLOROTHIAZIDE, VALSARTAN) [Concomitant]
  7. MOBIC (MELOXICAM) [Concomitant]

REACTIONS (28)
  - Diverticulitis [None]
  - Renal failure acute [None]
  - Renal failure chronic [None]
  - Nephrogenic anaemia [None]
  - Hypovolaemia [None]
  - Abdominal pain upper [None]
  - Dehydration [None]
  - Nausea [None]
  - Dizziness [None]
  - Decreased appetite [None]
  - Asthenia [None]
  - Hypovolaemia [None]
  - Cough [None]
  - Productive cough [None]
  - Dyspnoea [None]
  - Wheezing [None]
  - Cardiomegaly [None]
  - Atelectasis [None]
  - Arthralgia [None]
  - Myalgia [None]
  - Gastritis [None]
  - Spinal osteoarthritis [None]
  - Fibromyalgia [None]
  - Headache [None]
  - Insomnia [None]
  - Sinus congestion [None]
  - Drug ineffective [None]
  - Condition aggravated [None]
